FAERS Safety Report 9524067 (Version 1)
Quarter: 2013Q1

REPORT INFORMATION
  Report Type: Spontaneous
  Country: US (occurrence: None)
  Receive Date: 20130305
  Receipt Date: 20130305
  Transmission Date: 20140127
  Serious: Yes (Other)
  Sender: FDA-Public Use
  Company Number: 163-21880-12032720

PATIENT
  Age: 70 Year
  Sex: Female
  Weight: 71.22 kg

DRUGS (21)
  1. REVLIMID [Suspect]
     Indication: PLASMA CELL MYELOMA
     Dosage: 15MG, DAILY X 21 DAYS, PO
     Route: 048
     Dates: start: 20110111
  2. ACYCLOVIR (ACICLOVIR) [Concomitant]
  3. DECADRON (DEXAMETHASONE) [Concomitant]
  4. LUNESTA (ESZOPICLONE) [Concomitant]
  5. TAMIFLU (OSELTAMIVIR) [Concomitant]
  6. ADVAIR (SERETIDE MITE) [Concomitant]
  7. ALLOPURINOL [Concomitant]
  8. LIPITOR (ATORVASTATIN) [Concomitant]
  9. MAXAIR (PRIBUTEROL ACETATE) [Concomitant]
  10. SPIRIVA (TIOTROPIUM BROMIDE) [Concomitant]
  11. PRILOSEC [Concomitant]
  12. ALBUTEROL (SALBUTAMOL) [Concomitant]
  13. LANSOPRAZOLE (LANSOPRAZOLE) [Concomitant]
  14. PREDNISONE (PREDNISONE) [Concomitant]
  15. ACETAMINOPHEN (PARACETAMOL) [Concomitant]
  16. BENZONATATE (BENZONATATE) [Concomitant]
  17. ZOFRAN (ONDANSETRON HYDROCHLORIDE) [Concomitant]
  18. AMBIEN (ZOLPIDEM TARTRATE) [Concomitant]
  19. ATIVAN (LORAZEPAM) (TABLET) [Concomitant]
  20. MAGNESIUM OXIDE (MAGNESIUM OXIDE) [Concomitant]
  21. K-DUR (POTASSIUM CHLORIDE) [Concomitant]

REACTIONS (2)
  - Acid fast bacilli infection [None]
  - Aspergillus infection [None]
